FAERS Safety Report 5237004-5 (Version None)
Quarter: 2007Q1

REPORT INFORMATION
  Report Type: 
  Country: None (occurrence: None)
  Receive Date: 20070213
  Receipt Date: 20070131
  Transmission Date: 20070707
  Serious: Yes (Other)
  Sender: FDA-Public Use
  Company Number: PHHO2007US02205

PATIENT
  Age: 70 Year

DRUGS (7)
  1. VALSARTAN [Concomitant]
  2. INNOPRAN [Concomitant]
  3. PANTOPRAZOLE SODIUM [Concomitant]
  4. ATORVASTATIN CALCIUM [Concomitant]
  5. FEXOFENADINE HYDROCHLORIDE [Concomitant]
  6. TELMISARTAN [Concomitant]
  7. LETROZOLE [Suspect]
     Indication: BREAST CANCER METASTATIC
     Dosage: 2.5 MG, QD
     Route: 048
     Dates: start: 20050725

REACTIONS (1)
  - EJECTION FRACTION DECREASED [None]
